FAERS Safety Report 9264798 (Version 1)
Quarter: 2013Q3

REPORT INFORMATION
  Report Type: Spontaneous
  Country: US (occurrence: None)
  Receive Date: 20130430
  Receipt Date: 20130430
  Transmission Date: 20140515
  Serious: Yes (Hospitalization)
  Sender: FDA-Public Use
  Company Number: None

PATIENT
  Age: 32 Year
  Sex: Male
  Weight: 65.1 kg

DRUGS (17)
  1. CELLS, NOS [Suspect]
     Indication: ACUTE MYELOID LEUKAEMIA
     Dosage: SINGLE IV INFUSION
     Route: 042
     Dates: start: 20130103
  2. ACETAMINOPHEN [Concomitant]
  3. ACTIGALL [Concomitant]
  4. AUGMENTIN [Concomitant]
  5. BACLOFEN [Concomitant]
  6. BARACLUDE [Concomitant]
  7. CELEXA [Concomitant]
  8. CIPRO [Concomitant]
  9. COLACE [Concomitant]
  10. DAPSONE [Concomitant]
  11. ESOMEPRAZOLE [Concomitant]
  12. GABAPENTIN [Concomitant]
  13. MIRALAX [Concomitant]
  14. MS CONTIN [Concomitant]
  15. POSACONAZOLE [Concomitant]
  16. GM-CSF [Suspect]
     Indication: ACUTE MYELOID LEUKAEMIA
  17. PLERIXAFOR [Suspect]
     Indication: ACUTE MYELOID LEUKAEMIA

REACTIONS (1)
  - Arthralgia [None]
